APPROVED DRUG PRODUCT: ICOSAPENT ETHYL
Active Ingredient: ICOSAPENT ETHYL
Strength: 1GM
Dosage Form/Route: CAPSULE;ORAL
Application: A209437 | Product #001 | TE Code: AB
Applicant: APOTEX INC
Approved: Jun 30, 2021 | RLD: No | RS: No | Type: RX